FAERS Safety Report 23474625 (Version 1)
Quarter: 2024Q1

REPORT INFORMATION
  Report Type: Report from Study
  Country: US (occurrence: US)
  Receive Date: 20240204
  Receipt Date: 20240204
  Transmission Date: 20240410
  Serious: Yes (Hospitalization, Other)
  Sender: FDA-Public Use
  Company Number: US-EXELIXIS-CABO-23064163

PATIENT
  Sex: Male

DRUGS (8)
  1. CABOMETYX [Suspect]
     Active Substance: CABOZANTINIB S-MALATE
     Indication: Adrenocortical carcinoma
     Dosage: 40 MG, QD
     Dates: start: 2023, end: 20230725
  2. CABOMETYX [Suspect]
     Active Substance: CABOZANTINIB S-MALATE
     Indication: Adrenal insufficiency
  3. GABAPENTIN [Concomitant]
     Active Substance: GABAPENTIN
  4. HYDROCORTISONE [Concomitant]
     Active Substance: HYDROCORTISONE
  5. LEVOTHYROXINE [Concomitant]
     Active Substance: LEVOTHYROXINE\LEVOTHYROXINE SODIUM
  6. ELIQUIS [Concomitant]
     Active Substance: APIXABAN
  7. AMBIEN [Concomitant]
     Active Substance: ZOLPIDEM TARTRATE
  8. ACETAMINOPHEN\HYDROCODONE [Concomitant]
     Active Substance: ACETAMINOPHEN\HYDROCODONE

REACTIONS (16)
  - Neoplasm malignant [Unknown]
  - Malignant neoplasm progression [Unknown]
  - Muscle tightness [Recovered/Resolved]
  - Muscular weakness [Recovered/Resolved]
  - Blood phosphorus decreased [Unknown]
  - Blood magnesium decreased [Unknown]
  - Fatigue [Not Recovered/Not Resolved]
  - Decreased appetite [Recovering/Resolving]
  - Weight decreased [Not Recovered/Not Resolved]
  - Blood pressure increased [Recovered/Resolved]
  - Diarrhoea [Recovered/Resolved]
  - Constipation [Recovered/Resolved]
  - Nausea [Unknown]
  - Arthralgia [Not Recovered/Not Resolved]
  - Palmar-plantar erythrodysaesthesia syndrome [Recovered/Resolved]
  - Off label use [Unknown]
